FAERS Safety Report 8893230 (Version 1)
Quarter: 2012Q4

REPORT INFORMATION
  Report Type: 
  Country: PH (occurrence: PH)
  Receive Date: 20121108
  Receipt Date: 20121108
  Transmission Date: 20130627
  Serious: Yes (Other)
  Sender: FDA-Public Use
  Company Number: PHHY2011PH51578

PATIENT
  Sex: Female

DRUGS (5)
  1. GLIVEC [Suspect]
     Indication: GASTROINTESTINAL STROMAL TUMOUR
     Dosage: 400 mg, QD
     Route: 048
     Dates: start: 20060116
  2. GLIVEC [Suspect]
     Dosage: 800 mg, QD
     Route: 048
     Dates: end: 20110610
  3. GLIVEC [Suspect]
  4. SUNITINIB MALATE [Suspect]
  5. COBALT THERAPY [Concomitant]

REACTIONS (3)
  - Metastases to liver [Unknown]
  - Neoplasm progression [Unknown]
  - Malignant neoplasm progression [Unknown]
